FAERS Safety Report 5955418-2 (Version None)
Quarter: 2008Q4

REPORT INFORMATION
  Report Type: 
  Country: None (occurrence: None)
  Receive Date: 20081117
  Receipt Date: 20081113
  Transmission Date: 20090506
  Serious: Yes (Life-Threatening, Hospitalization)
  Sender: FDA-Public Use
  Company Number: NA-BRISTOL-MYERS SQUIBB COMPANY-14389787

PATIENT
  Age: 61 Year
  Sex: Male
  Weight: 87 kg

DRUGS (6)
  1. ERBITUX [Suspect]
     Indication: COLORECTAL CANCER
     Route: 042
     Dates: start: 20081013, end: 20081106
  2. XELODA [Concomitant]
     Indication: COLON CANCER
     Route: 048
  3. XELODA [Concomitant]
     Indication: COLON CANCER RECURRENT
     Route: 048
  4. ELOXATIN [Concomitant]
     Indication: COLON CANCER RECURRENT
     Dates: start: 20080606, end: 20080606
  5. AVASTIN [Concomitant]
     Indication: COLON CANCER RECURRENT
     Dosage: ALSO TAKEN AS 400MG
     Dates: start: 20080606
  6. CAMPTOSAR [Concomitant]
     Indication: COLON CANCER RECURRENT

REACTIONS (2)
  - DERMATITIS ACNEIFORM [None]
  - HYPOGLYCAEMIA [None]
